FAERS Safety Report 10413985 (Version 2)
Quarter: 2014Q3

REPORT INFORMATION
  Report Type: Spontaneous
  Country: US (occurrence: US)
  Receive Date: 20140827
  Receipt Date: 20140827
  Transmission Date: 20150326
  Serious: Yes (Hospitalization)
  Sender: FDA-Public Use
  Company Number: US-009507513-2011SP027541

PATIENT
  Sex: Female
  Weight: 99.34 kg

DRUGS (2)
  1. NUVARING [Suspect]
     Active Substance: ETHINYL ESTRADIOL\ETONOGESTREL
     Indication: MENSTRUAL CYCLE MANAGEMENT
     Route: 067
     Dates: start: 20090603, end: 20090629
  2. PROVERA [Concomitant]
     Active Substance: MEDROXYPROGESTERONE ACETATE
     Indication: DYSFUNCTIONAL UTERINE BLEEDING
     Dosage: INITIALY 10 MG X ABOUT 10 DAYS, THEN INCREASED TO 20 MG BID X 10 DAYS
     Route: 048
     Dates: start: 200905, end: 200906

REACTIONS (2)
  - Off label use [Unknown]
  - Deep vein thrombosis [Recovered/Resolved]

NARRATIVE: CASE EVENT DATE: 20090622
